FAERS Safety Report 5051670-9 (Version None)
Quarter: 2006Q3

REPORT INFORMATION
  Report Type: 
  Country: None (occurrence: None)
  Receive Date: 20060714
  Receipt Date: 20060519
  Transmission Date: 20061208
  Serious: Yes (Congenital Anomaly, Other)
  Sender: FDA-Public Use
  Company Number: US-GILEAD-2006-0009607

PATIENT
  Sex: Male
  Weight: 3 kg

DRUGS (11)
  1. TRUVADA [Suspect]
     Indication: HIV INFECTION
     Route: 064
     Dates: start: 20040316, end: 20050330
  2. NORVIR [Concomitant]
     Indication: HIV INFECTION
     Route: 064
     Dates: start: 20040316, end: 20050330
  3. REYATAZ [Concomitant]
     Indication: HIV INFECTION
     Route: 064
     Dates: start: 20040316, end: 20050330
  4. KALETRA [Concomitant]
     Indication: HIV INFECTION
     Route: 064
     Dates: start: 20050330, end: 20050525
  5. TRIZIVIR [Concomitant]
     Indication: HIV INFECTION
     Route: 064
     Dates: start: 20050330, end: 20050525
  6. VIRACEPT [Concomitant]
     Indication: HIV INFECTION
     Route: 064
     Dates: start: 20050603, end: 20051227
  7. COMBIVIR [Concomitant]
     Indication: HIV INFECTION
     Route: 064
     Dates: start: 20050603, end: 20051227
  8. ZIDOVUDINE [Concomitant]
     Route: 064
     Dates: start: 20051103, end: 20051103
  9. ZIDOVUDINE [Concomitant]
     Route: 064
     Dates: start: 20051103, end: 20051103
  10. TRIMETHOPRIM + SULFAMETHOXAZOLE [Concomitant]
     Route: 064
  11. FOLATE SUPPLEMENT [Concomitant]
     Route: 064

REACTIONS (20)
  - APNOEA [None]
  - CONVULSION [None]
  - CONVULSION NEONATAL [None]
  - DEVELOPMENTAL DELAY [None]
  - DRUG EXPOSURE DURING PREGNANCY [None]
  - EYE MOVEMENT DISORDER [None]
  - FATIGUE [None]
  - FEEDING DISORDER NEONATAL [None]
  - HYPERREFLEXIA [None]
  - HYPOPITUITARISM [None]
  - HYPOTONIA [None]
  - HYPOTONIA NEONATAL [None]
  - INFANTILE APNOEIC ATTACK [None]
  - METABOLIC DISORDER [None]
  - NERVOUS SYSTEM DISORDER [None]
  - OXYGEN SATURATION DECREASED [None]
  - RESPIRATORY DISORDER NEONATAL [None]
  - SEPSIS [None]
  - SEPSIS NEONATAL [None]
  - TRISOMY 15 [None]
